FAERS Safety Report 23647639 (Version 2)
Quarter: 2024Q3

REPORT INFORMATION
  Report Type: Report from Study
  Country: US (occurrence: US)
  Receive Date: 20240319
  Receipt Date: 20240730
  Transmission Date: 20241016
  Serious: Yes (Hospitalization, Other)
  Sender: BAYER
  Company Number: US-BAYER-2024A040596

PATIENT
  Age: 55 Year
  Sex: Female
  Weight: 48.98 kg

DRUGS (19)
  1. ADEMPAS [Suspect]
     Active Substance: RIOCIGUAT
     Indication: Pulmonary arterial hypertension
     Dosage: UNK
     Dates: start: 20230720
  2. ADEMPAS [Suspect]
     Active Substance: RIOCIGUAT
     Indication: Pulmonary arterial hypertension
     Dosage: 2.5 MG, TID
     Route: 048
  3. ADEMPAS [Suspect]
     Active Substance: RIOCIGUAT
     Indication: Pulmonary arterial hypertension
     Dosage: 2.5 MG, TID
     Route: 048
  4. OMEPRAZOLE [Concomitant]
     Active Substance: OMEPRAZOLE
  5. METOPROLOL TARTRATE [Concomitant]
     Active Substance: METOPROLOL TARTRATE
  6. PEPCID AC [Concomitant]
     Active Substance: FAMOTIDINE
  7. MEGESTROL ACETATE [Concomitant]
     Active Substance: MEGESTROL ACETATE
  8. BACTRIM DS [Concomitant]
     Active Substance: SULFAMETHOXAZOLE\TRIMETHOPRIM
  9. LASIX [Concomitant]
     Active Substance: FUROSEMIDE
  10. ELIQUIS [Concomitant]
     Active Substance: APIXABAN
  11. CELLCEPT [Concomitant]
     Active Substance: MYCOPHENOLATE MOFETIL
  12. REMODULIN [Concomitant]
     Active Substance: TREPROSTINIL
  13. SPIRONOLACTONE [Concomitant]
     Active Substance: SPIRONOLACTONE
  14. OFEV [Concomitant]
     Active Substance: NINTEDANIB
  15. OXYGEN [Concomitant]
     Active Substance: OXYGEN
  16. DIGOXIN [Concomitant]
     Active Substance: DIGOXIN
  17. LOPERAMIDE [Concomitant]
     Active Substance: LOPERAMIDE
  18. PREDNISONE [Concomitant]
     Active Substance: PREDNISONE
  19. CEFUROXIME [Concomitant]
     Active Substance: CEFUROXIME

REACTIONS (5)
  - Dyspnoea [None]
  - Hypoxia [None]
  - Productive cough [None]
  - Cardiac disorder [None]
  - Cough [None]
